FAERS Safety Report 15080668 (Version 1)
Quarter: 2018Q2

REPORT INFORMATION
  Report Type: Spontaneous
  Country: US (occurrence: US)
  Receive Date: 20180628
  Receipt Date: 20180628
  Transmission Date: 20180711
  Serious: No
  Sender: FDA-Public Use
  Company Number: US-TEVA-2018-US-901929

PATIENT

DRUGS (1)
  1. AMPHETAMINE W/DEXTROAMPHETAMINE [Suspect]
     Active Substance: AMPHETAMINE SULFATE\DEXTROAMPHETAMINE
     Route: 065

REACTIONS (6)
  - Dry mouth [Unknown]
  - Drug ineffective [Unknown]
  - Feeling abnormal [Unknown]
  - Irritability [Unknown]
  - Malaise [Unknown]
  - Disturbance in attention [Unknown]
